FAERS Safety Report 16728957 (Version 1)
Quarter: 2019Q3

REPORT INFORMATION
  Report Type: Spontaneous
  Country: US (occurrence: US)
  Receive Date: 20190705
  Receipt Date: 20190705
  Transmission Date: 20191005
  Serious: No
  Sender: FDA-Public Use
  Company Number: None

PATIENT
  Sex: Female

DRUGS (3)
  1. DALFAMPRIDINE ER 10MG AUROBINDO PHARMA [Suspect]
     Active Substance: DALFAMPRIDINE
     Indication: MULTIPLE SCLEROSIS
     Route: 048
     Dates: start: 20181201
  2. DULOXETINE. [Suspect]
     Active Substance: DULOXETINE
  3. CHOLRDIAZEPOXIDE [Concomitant]

REACTIONS (6)
  - Personality change [None]
  - Mood altered [None]
  - Product substitution issue [None]
  - Anxiety [None]
  - Muscular weakness [None]
  - Agitation [None]
